FAERS Safety Report 20510145 (Version 2)
Quarter: 2022Q1

REPORT INFORMATION
  Report Type: Report from Study
  Country: IT (occurrence: IT)
  Receive Date: 20220224
  Receipt Date: 20220318
  Transmission Date: 20220423
  Serious: Yes (Death)
  Sender: FDA-Public Use
  Company Number: IT-TEVA-2022-IT-2009297

PATIENT

DRUGS (5)
  1. FLUOROURACIL [Suspect]
     Active Substance: FLUOROURACIL
     Indication: Colorectal cancer metastatic
     Dosage: A FIRST-LINE REGIMEN WITH TRIPLET PLUS BEVACIZUMAB
     Route: 065
  2. OXALIPLATIN [Suspect]
     Active Substance: OXALIPLATIN
     Indication: Colorectal cancer metastatic
     Dosage: A FIRST-LINE REGIMEN WITH TRIPLET PLUS BEVACIZUMAB
     Route: 065
  3. BEVACIZUMAB [Suspect]
     Active Substance: BEVACIZUMAB
     Indication: Colorectal cancer metastatic
     Dosage: A FIRST-LINE REGIMEN WITH TRIPLET PLUS BEVACIZUMAB
     Route: 065
  4. LEUCOVORIN [Suspect]
     Active Substance: LEUCOVORIN
     Indication: Colorectal cancer metastatic
     Dosage: A FIRST-LINE REGIMEN WITH TRIPLET PLUS BEVACIZUMAB
     Route: 065
  5. IRINOTECAN [Suspect]
     Active Substance: IRINOTECAN
     Indication: Colorectal cancer metastatic
     Dosage: A FIRST-LINE REGIMEN WITH TRIPLET PLUS BEVACIZUMAB
     Route: 065

REACTIONS (1)
  - Febrile neutropenia [Fatal]
